FAERS Safety Report 8853015 (Version 2)
Quarter: 2012Q4

REPORT INFORMATION
  Report Type: Report from Study
  Country: US (occurrence: US)
  Receive Date: 20121022
  Receipt Date: 20121128
  Transmission Date: 20130627
  Serious: Yes (Other)
  Sender: FDA-Public Use
  Company Number: US-ABBOTT-12P-163-0995208-00

PATIENT
  Age: 54 Year
  Sex: Female

DRUGS (2)
  1. HUMIRA [Suspect]
     Indication: IRITIS
     Dates: start: 201207, end: 201210
  2. HUMIRA [Suspect]
     Indication: ARTHRITIS

REACTIONS (6)
  - Craniocerebral injury [Not Recovered/Not Resolved]
  - Road traffic accident [Not Recovered/Not Resolved]
  - Rash erythematous [Unknown]
  - Skin papilloma [Unknown]
  - Pain [Unknown]
  - Rash papular [Unknown]
